FAERS Safety Report 6956908-6 (Version None)
Quarter: 2010Q3

REPORT INFORMATION
  Report Type: 
  Country: None (occurrence: None)
  Receive Date: 20100830
  Receipt Date: 20100728
  Transmission Date: 20110219
  Serious: No
  Sender: FDA-Public Use
  Company Number: US-ALLERGAN-1009883US

PATIENT
  Age: 88 Year
  Sex: Female

DRUGS (2)
  1. SANCTURA XR [Suspect]
     Indication: URINARY INCONTINENCE
     Dosage: 60 MG FOR 2 DAYS, THEN OFF FOR 2 DAYS
     Route: 048
     Dates: start: 20100701
  2. SANCTURA XR [Suspect]
     Dosage: 60 MG, QD
     Route: 048
     Dates: start: 20100630

REACTIONS (4)
  - ABDOMINAL DISCOMFORT [None]
  - CONSTIPATION [None]
  - GASTROINTESTINAL MOTILITY DISORDER [None]
  - URINARY INCONTINENCE [None]
